FAERS Safety Report 24303135 (Version 7)
Quarter: 2025Q1

REPORT INFORMATION
  Report Type: Report from Study
  Country: AR (occurrence: AR)
  Receive Date: 20240910
  Receipt Date: 20250314
  Transmission Date: 20250409
  Serious: Yes (Death, Other)
  Sender: AMGEN
  Company Number: AR-AMGEN-ARGSL2024108245

PATIENT
  Age: 64 Year
  Sex: Male

DRUGS (1)
  1. VECTIBIX [Suspect]
     Active Substance: PANITUMUMAB
     Indication: Colorectal cancer
     Route: 065
     Dates: start: 20240513

REACTIONS (26)
  - Death [Fatal]
  - Cachexia [Unknown]
  - Neuropathy peripheral [Unknown]
  - Syncope [Unknown]
  - Neoplasm malignant [Unknown]
  - Skin reaction [Unknown]
  - Oedema peripheral [Unknown]
  - Pain of skin [Unknown]
  - Skin fissures [Unknown]
  - Acne [Not Recovered/Not Resolved]
  - Vomiting [Unknown]
  - Decreased appetite [Unknown]
  - Skin injury [Unknown]
  - Limb discomfort [Unknown]
  - Skin disorder [Unknown]
  - Underweight [Unknown]
  - Anaemia [Unknown]
  - Fluid retention [Unknown]
  - Myalgia [Unknown]
  - Weight increased [Unknown]
  - Abdominal distension [Unknown]
  - Blood potassium decreased [Unknown]
  - Illness [Unknown]
  - Blood iron decreased [Unknown]
  - Convalescent [Unknown]
  - Fatigue [Unknown]

NARRATIVE: CASE EVENT DATE: 20240101
